FAERS Safety Report 16867380 (Version 1)
Quarter: 2019Q3

REPORT INFORMATION
  Report Type: Spontaneous
  Country: US (occurrence: US)
  Receive Date: 20190806
  Receipt Date: 20190806
  Transmission Date: 20191005
  Serious: No
  Sender: FDA-Public Use
  Company Number: None

PATIENT

DRUGS (1)
  1. IBRANCE [Suspect]
     Active Substance: PALBOCICLIB
     Dates: start: 20180625

REACTIONS (3)
  - Incorrect product administration duration [None]
  - Accidental exposure to product [None]
  - Extra dose administered [None]

NARRATIVE: CASE EVENT DATE: 20190806
